FAERS Safety Report 5932241-6 (Version None)
Quarter: 2008Q4

REPORT INFORMATION
  Report Type: 
  Country: None (occurrence: None)
  Receive Date: 20081028
  Receipt Date: 20081020
  Transmission Date: 20090506
  Serious: Yes (Other)
  Sender: FDA-Public Use
  Company Number: PL-BRISTOL-MYERS SQUIBB COMPANY-14371629

PATIENT
  Age: 24 Year
  Sex: Male

DRUGS (8)
  1. VEPESID [Suspect]
     Indication: T-CELL LYMPHOMA
     Dosage: 4 CYCLES.
     Route: 042
     Dates: start: 20070201
  2. CISPLATIN [Suspect]
     Indication: T-CELL LYMPHOMA
     Dosage: 4 CYCLES.
     Route: 042
     Dates: start: 20070201
  3. CYCLOPHOSPHAMIDE [Suspect]
     Indication: T-CELL LYMPHOMA
     Route: 042
  4. VINCRISTINE SULFATE [Suspect]
     Indication: T-CELL LYMPHOMA
     Route: 042
  5. SOLU-MEDROL [Suspect]
     Indication: T-CELL LYMPHOMA
     Dosage: 4 CYCLES.
     Route: 042
     Dates: start: 20070201
  6. ARA-C [Suspect]
     Indication: T-CELL LYMPHOMA
     Dosage: 4 CYCLES.
     Route: 042
     Dates: start: 20070201
  7. ADRIAMYCIN PFS [Suspect]
     Indication: T-CELL LYMPHOMA
     Route: 042
  8. ENCORTON [Suspect]
     Indication: T-CELL LYMPHOMA
     Route: 048

REACTIONS (2)
  - MYCOSIS FUNGOIDES RECURRENT [None]
  - MYELODYSPLASTIC SYNDROME [None]
